FAERS Safety Report 9998097 (Version 1)
Quarter: 2014Q1

REPORT INFORMATION
  Report Type: Spontaneous
  Country: US (occurrence: None)
  Receive Date: 20140221
  Receipt Date: 20140221
  Transmission Date: 20141002
  Serious: Yes (Other)
  Sender: FDA-Public Use
  Company Number: 1000052126

PATIENT
  Sex: Female

DRUGS (1)
  1. TUDORZA PRESSAIR [Suspect]
     Dosage: 800MCG (400 MCG, 2 IN 1 D)
     Route: 055

REACTIONS (3)
  - Cough [None]
  - Retching [None]
  - Nasopharyngitis [None]
